FAERS Safety Report 4611151-0 (Version None)
Quarter: 2005Q1

REPORT INFORMATION
  Report Type: 
  Country: None (occurrence: None)
  Receive Date: 20050315
  Receipt Date: 20050315
  Transmission Date: 20050727
  Serious: Yes (Life-Threatening, Hospitalization)
  Sender: FDA-Public Use
  Company Number: None

PATIENT
  Age: 15 Year
  Sex: Female
  Weight: 84.369 kg

DRUGS (6)
  1. ONCASPAR [Suspect]
     Indication: ACUTE LYMPHOCYTIC LEUKAEMIA
     Dosage: 5000 UNITS 1 DOSE IM
     Route: 030
  2. IT ARA-C [Concomitant]
  3. VINCRISTINE [Concomitant]
  4. DAUNORUBICIN HCL [Concomitant]
  5. DECADRON [Concomitant]
  6. METHOTREXATE [Concomitant]

REACTIONS (2)
  - GRAND MAL CONVULSION [None]
  - HEADACHE [None]
